FAERS Safety Report 8963788 (Version 1)
Quarter: 2012Q4

REPORT INFORMATION
  Report Type: 
  Country: US (occurrence: US)
  Receive Date: 20121214
  Receipt Date: 20121214
  Transmission Date: 20130627
  Serious: Yes (Death, Hospitalization)
  Sender: FDA-Public Use
  Company Number: US-SHIRE-ALL1-2012-04794

PATIENT
  Age: 67 Year
  Sex: Female

DRUGS (18)
  1. FOSRENOL [Suspect]
     Indication: RENAL FAILURE CHRONIC
     Dosage: 500 mg, 3x/day:tid (half of 1000 mg tablet three times daily)
     Route: 048
     Dates: start: 20120223
  2. FOSRENOL [Suspect]
     Indication: HYPERPHOSPHATAEMIA
  3. EPOGEN [Concomitant]
     Indication: PRODUCT USED FOR UNKNOWN INDICATION
     Dosage: 14000 IU, 1x/week
     Route: 058
     Dates: start: 20120929
  4. ASPIRIN [Concomitant]
     Indication: PRODUCT USED FOR UNKNOWN INDICATION
     Dosage: 325 mg, 1x/day:qd
     Route: 065
     Dates: start: 20110808
  5. NORCO [Concomitant]
     Indication: PRODUCT USED FOR UNKNOWN INDICATION
     Dosage: 5/325 mg, 3x/day:tid
     Route: 048
     Dates: start: 20120809
  6. AMLODIPINE BESYLATE [Concomitant]
     Indication: PRODUCT USED FOR UNKNOWN INDICATION
     Dosage: 5 mg, 1x/day:qd
     Route: 048
     Dates: start: 20120809
  7. COREG [Concomitant]
     Indication: PRODUCT USED FOR UNKNOWN INDICATION
     Dosage: 25 mg, 2x/day:bid
     Route: 065
     Dates: start: 20110808
  8. LISINOPRIL [Concomitant]
     Indication: PRODUCT USED FOR UNKNOWN INDICATION
     Dosage: 40 mg, 1x/day:qd
     Route: 065
     Dates: start: 20120811
  9. SIMVASTATIN [Concomitant]
     Indication: PRODUCT USED FOR UNKNOWN INDICATION
     Dosage: 10 mg, 1x/day:qd
     Route: 048
     Dates: start: 20120524
  10. SPIRONOLACTONE [Concomitant]
     Indication: PRODUCT USED FOR UNKNOWN INDICATION
     Dosage: 12.5 mg, 1x/day:qd (half of 25 mg tablet daily)
     Route: 065
     Dates: start: 20110808
  11. AMITRIPTYLINE HCL [Concomitant]
     Indication: PRODUCT USED FOR UNKNOWN INDICATION
     Dosage: 50 mg, 1x/day:qd (every bedtime)
     Route: 048
     Dates: start: 20120428
  12. LEVOTHYROXINE SODIUM [Concomitant]
     Indication: PRODUCT USED FOR UNKNOWN INDICATION
     Dosage: 25 ?g, 1x/day:qd
     Route: 048
     Dates: start: 20120119
  13. MIRALAX                            /00754501/ [Concomitant]
     Indication: PRODUCT USED FOR UNKNOWN INDICATION
     Dosage: 17 g, As req^d
     Route: 048
     Dates: start: 20120811
  14. PLAVIX [Concomitant]
     Indication: PRODUCT USED FOR UNKNOWN INDICATION
     Dosage: 75 mg, 1x/day:qd
     Route: 065
     Dates: start: 20110808
  15. NEURONTIN [Concomitant]
     Indication: PRODUCT USED FOR UNKNOWN INDICATION
     Dosage: 100 mg, 2x/day:bid
     Route: 065
     Dates: start: 20120811
  16. NEPHROVITE [Concomitant]
     Indication: PRODUCT USED FOR UNKNOWN INDICATION
     Dosage: 1 DF, 1x/day:qd
     Route: 065
     Dates: start: 20110808
  17. OXYGEN [Concomitant]
     Indication: EMPHYSEMA
     Dosage: UNK, Other (at night)
     Route: 055
  18. OXYGEN [Concomitant]
     Indication: CHRONIC OBSTRUCTIVE PULMONARY DISEASE

REACTIONS (5)
  - Death [Fatal]
  - Urinary tract infection [Unknown]
  - Pneumonia aspiration [Unknown]
  - Skin disorder [Unknown]
  - Decreased appetite [Unknown]
